FAERS Safety Report 14038533 (Version 1)
Quarter: 2017Q4

REPORT INFORMATION
  Report Type: Spontaneous
  Country: FR (occurrence: FR)
  Receive Date: 20171004
  Receipt Date: 20171004
  Transmission Date: 20180321
  Serious: Yes (Hospitalization)
  Sender: FDA-Public Use
  Company Number: FR-JNJFOC-20170931521

PATIENT
  Age: 88 Year
  Sex: Male

DRUGS (4)
  1. FLUINDIONE [Interacting]
     Active Substance: FLUINDIONE
     Indication: ATRIAL FIBRILLATION
     Route: 048
     Dates: end: 20170910
  2. MEMANTINE. [Concomitant]
     Active Substance: MEMANTINE
     Route: 065
  3. XARELTO [Suspect]
     Active Substance: RIVAROXABAN
     Indication: ATRIAL FIBRILLATION
     Route: 048
  4. FLECAINE [Concomitant]
     Active Substance: FLECAINIDE
     Route: 065

REACTIONS (3)
  - International normalised ratio increased [Not Recovered/Not Resolved]
  - Haematuria [Not Recovered/Not Resolved]
  - Labelled drug-drug interaction medication error [Not Recovered/Not Resolved]

NARRATIVE: CASE EVENT DATE: 20170910
